FAERS Safety Report 9185025 (Version 1)
Quarter: 2013Q1

REPORT INFORMATION
  Report Type: Spontaneous
  Country: GB (occurrence: GB)
  Receive Date: 20130325
  Receipt Date: 20130325
  Transmission Date: 20140127
  Serious: Yes (Other)
  Sender: FDA-Public Use
  Company Number: GB-ROCHE-1204078

PATIENT
  Sex: Female

DRUGS (2)
  1. LUCENTIS [Suspect]
     Indication: AGE-RELATED MACULAR DEGENERATION
     Route: 050
     Dates: start: 2009
  2. LUCENTIS [Suspect]
     Route: 050
     Dates: start: 2013

REACTIONS (4)
  - Breast cancer [Unknown]
  - Vision blurred [Unknown]
  - Eye discharge [Unknown]
  - Inappropriate schedule of drug administration [Unknown]
